FAERS Safety Report 23646889 (Version 2)
Quarter: 2024Q2

REPORT INFORMATION
  Report Type: Report from Study
  Country: US (occurrence: US)
  Receive Date: 20240319
  Receipt Date: 20240520
  Transmission Date: 20240715
  Serious: Yes (Hospitalization)
  Sender: FDA-Public Use
  Company Number: US-ABBVIE-5666064

PATIENT
  Sex: Female

DRUGS (1)
  1. VENCLEXTA [Suspect]
     Active Substance: VENETOCLAX
     Indication: Acute myeloid leukaemia
     Dosage: FORM STRENGTH: 100 MILLIGRAM, LAST ADMIN DATE - 2024
     Route: 048
     Dates: start: 202402

REACTIONS (15)
  - Pain [Unknown]
  - Dry mouth [Unknown]
  - Hypertension [Unknown]
  - White blood cell count increased [Unknown]
  - Hospitalisation [Unknown]
  - Fall [Unknown]
  - White blood cell count decreased [Unknown]
  - Contusion [Unknown]
  - Neutrophil count increased [Unknown]
  - Haemoglobin decreased [Unknown]
  - Headache [Unknown]
  - Fatigue [Unknown]
  - Diverticulitis [Unknown]
  - Rales [Unknown]
  - Seasonal allergy [Unknown]

NARRATIVE: CASE EVENT DATE: 20240101
